FAERS Safety Report 6699625-2 (Version None)
Quarter: 2010Q2

REPORT INFORMATION
  Report Type: 
  Country: None (occurrence: None)
  Receive Date: 20100428
  Receipt Date: 20100420
  Transmission Date: 20101027
  Serious: No
  Sender: FDA-Public Use
  Company Number: US-BIOGENIDEC-2010BI006959

PATIENT
  Age: 69 Year
  Sex: Female

DRUGS (2)
  1. TYSABRI [Suspect]
     Indication: MULTIPLE SCLEROSIS
     Route: 042
     Dates: start: 20070531, end: 20100204
  2. TYSABRI [Suspect]
     Route: 042
     Dates: start: 20100415

REACTIONS (5)
  - ALOPECIA [None]
  - BURNING SENSATION [None]
  - EYE INFECTION [None]
  - FEELING COLD [None]
  - URTICARIA [None]
